FAERS Safety Report 16664493 (Version 3)
Quarter: 2019Q3

REPORT INFORMATION
  Report Type: Spontaneous
  Country: BE (occurrence: BE)
  Receive Date: 20190802
  Receipt Date: 20190807
  Transmission Date: 20191004
  Serious: Yes (Other)
  Sender: FDA-Public Use
  Company Number: PHHY2019BE168520

PATIENT
  Age: 43 Year
  Sex: Female

DRUGS (16)
  1. BASILIXIMAB [Suspect]
     Active Substance: BASILIXIMAB
     Indication: RENAL TRANSPLANT
     Dosage: UNK
     Route: 065
  2. CIDOFOVIR. [Suspect]
     Active Substance: CIDOFOVIR
     Dosage: 1 MG/KG, UNK
     Route: 065
  3. FOSCARNET SODIUM. [Suspect]
     Active Substance: FOSCARNET SODIUM
     Indication: CYTOMEGALOVIRUS INFECTION
     Dosage: UNK (GANCICLOVIR IN COMBINATION WITH FOSCARNET AND CMV IG WERE RESTARTED)
     Route: 065
  4. BASILIXIMAB [Suspect]
     Active Substance: BASILIXIMAB
     Indication: IMMUNOSUPPRESSANT DRUG THERAPY
  5. GANCICLOVIR. [Suspect]
     Active Substance: GANCICLOVIR
     Dosage: UNK (GANCICLOVIR IN COMBINATION WITH FOSCARNET AND CMV IG WERE RESTARTED)
     Route: 065
  6. FOSCARNET SODIUM. [Suspect]
     Active Substance: FOSCARNET SODIUM
     Dosage: 5600 MG, QD (2 X2800 MG/DAY;STOPPED AT DAY 101; THIS DOSE WAS LOWERED AFTER 6 DAYS TREATMENT)
     Route: 065
  7. IVEGAM CMV [Concomitant]
     Active Substance: HUMAN CYTOMEGALOVIRUS IMMUNE GLOBULIN
     Dosage: UNK (GANCICLOVIR IN COMBINATION WITH FOSCARNET AND CMV IG WERE RESTARTED)
     Route: 065
  8. TACROLIMUS. [Suspect]
     Active Substance: TACROLIMUS
     Indication: IMMUNOSUPPRESSANT DRUG THERAPY
  9. MYCOPHENOLATE MOFETIL. [Suspect]
     Active Substance: MYCOPHENOLATE MOFETIL
     Indication: IMMUNOSUPPRESSANT DRUG THERAPY
  10. IVEGAM CMV [Concomitant]
     Active Substance: HUMAN CYTOMEGALOVIRUS IMMUNE GLOBULIN
     Indication: PRODUCT USED FOR UNKNOWN INDICATION
     Dosage: 1 G, UNK
     Route: 065
  11. GANCICLOVIR. [Suspect]
     Active Substance: GANCICLOVIR
     Indication: CYTOMEGALOVIRUS INFECTION
     Dosage: 5 MG/KG (2 X 2.5 MG/KG), QD (FROM DAY 86 TO DAY 94)
     Route: 065
  12. MYCOPHENOLATE MOFETIL. [Suspect]
     Active Substance: MYCOPHENOLATE MOFETIL
     Indication: RENAL TRANSPLANT
     Dosage: 1000 MG (2 X 500 MG), QD (2 X 500 MG/DAY)
     Route: 065
  13. VALGANCICLOVIR. [Suspect]
     Active Substance: VALGANCICLOVIR
     Indication: ANTIVIRAL PROPHYLAXIS
     Dosage: 900 MG, QD (AUGMENTED TO 2 X 450 MG/D (DAY 43 POST-TRANSPLANTATION)
     Route: 065
  14. CIDOFOVIR. [Suspect]
     Active Substance: CIDOFOVIR
     Dosage: 5 MG/KG, UNK
     Route: 065
  15. TACROLIMUS. [Suspect]
     Active Substance: TACROLIMUS
     Indication: RENAL TRANSPLANT
     Dosage: UNK
     Route: 065
  16. CIDOFOVIR. [Suspect]
     Active Substance: CIDOFOVIR
     Indication: CYTOMEGALOVIRUS INFECTION
     Dosage: 2.5 MG/KG, UNK
     Route: 065

REACTIONS (7)
  - Nephropathy [Not Recovered/Not Resolved]
  - Diarrhoea [Recovered/Resolved]
  - Thrombocytopenia [Recovered/Resolved]
  - Cytomegalovirus infection [Unknown]
  - Drug resistance [Unknown]
  - Renal impairment [Recovering/Resolving]
  - Asthenia [Unknown]
